FAERS Safety Report 5901923-4 (Version None)
Quarter: 2008Q3

REPORT INFORMATION
  Report Type: 
  Country: None (occurrence: None)
  Receive Date: 20080929
  Receipt Date: 20080227
  Transmission Date: 20090109
  Serious: No
  Sender: FDA-Public Use
  Company Number: US-BRISTOL-MYERS SQUIBB COMPANY-14094965

PATIENT
  Age: 8 Month
  Sex: Male

DRUGS (1)
  1. BUSPAR [Suspect]
     Route: 064

REACTIONS (3)
  - ANGER [None]
  - PREGNANCY [None]
  - STUBBORNNESS [None]
